FAERS Safety Report 26195764 (Version 1)
Quarter: 2025Q4

REPORT INFORMATION
  Report Type: Spontaneous
  Country: US (occurrence: US)
  Receive Date: 20251224
  Receipt Date: 20251224
  Transmission Date: 20260118
  Serious: Yes (Other)
  Sender: BIOMARIN
  Company Number: US-SA-2025SA369528

PATIENT
  Age: 38 Year
  Sex: Female

DRUGS (1)
  1. LARONIDASE [Suspect]
     Active Substance: LARONIDASE
     Indication: Mucopolysaccharidosis I
     Dosage: LONG TERM, SINCE AGE 15

REACTIONS (2)
  - Cardiac failure [Unknown]
  - Dyspnoea [Unknown]
